FAERS Safety Report 20758101 (Version 1)
Quarter: 2022Q2

REPORT INFORMATION
  Report Type: Spontaneous
  Country: US (occurrence: US)
  Receive Date: 20220427
  Receipt Date: 20220427
  Transmission Date: 20220721
  Serious: No
  Sender: FDA-Public Use
  Company Number: US-Millicent Holdings Ltd.-MILL20220128

PATIENT
  Age: 40 Year
  Sex: Female

DRUGS (3)
  1. FEMRING [Suspect]
     Active Substance: ESTRADIOL ACETATE
     Indication: Menopause
     Dosage: 0.10 MG/DAY
     Route: 067
  2. FEMRING [Suspect]
     Active Substance: ESTRADIOL ACETATE
     Indication: Hot flush
     Dosage: UNKNOWN
     Route: 067
     Dates: start: 2016
  3. FEMRING [Suspect]
     Active Substance: ESTRADIOL ACETATE
     Indication: Sleep disorder

REACTIONS (4)
  - Sleep disorder [Unknown]
  - Drug ineffective [Unknown]
  - Hot flush [Unknown]
  - Wrong technique in product usage process [None]
